FAERS Safety Report 9516780 (Version 1)
Quarter: 2013Q3

REPORT INFORMATION
  Report Type: Spontaneous
  Country: US (occurrence: None)
  Receive Date: 20130903
  Receipt Date: 20130903
  Transmission Date: 20140515
  Serious: Yes (Other)
  Sender: FDA-Public Use
  Company Number: 125461

PATIENT
  Age: 40 Year
  Sex: Female
  Weight: 63.5 kg

DRUGS (1)
  1. PROCHLORPERAZINE EDISYLATE [Suspect]
     Indication: VOMITING
     Route: 042
     Dates: start: 20110205

REACTIONS (6)
  - Tardive dyskinesia [None]
  - Dissociative disorder [None]
  - Weight increased [None]
  - Leukaemia [None]
  - Dystonia [None]
  - Respiratory rate decreased [None]
